FAERS Safety Report 5858766-X (Version None)
Quarter: 2008Q3

REPORT INFORMATION
  Report Type: 
  Country: None (occurrence: None)
  Receive Date: 20080825
  Receipt Date: 20080819
  Transmission Date: 20090109
  Serious: Yes (Other)
  Sender: FDA-Public Use
  Company Number: 032493

PATIENT
  Age: 53 Year
  Sex: Female

DRUGS (9)
  1. METHOTREXATE [Suspect]
     Dosage: 12.5 MG, 1/WEEK, ORAL
     Route: 048
     Dates: start: 20020606
  2. ENBREL [Suspect]
     Indication: RHEUMATOID ARTHRITIS
     Dosage: 25 MG, 2/WEEK, SUBCUTANEOUS
     Route: 058
     Dates: start: 20021216
  3. PREDNISONE TAB [Suspect]
     Dosage: 2 MG, QD, ORAL
     Route: 048
  4. FOLIC ACID [Concomitant]
  5. ACETYLSALICYLIC ACID (ACETYLSALICYLIAC ACID) [Concomitant]
  6. DIGOXIN [Concomitant]
  7. LEVOTHYROXINE SODIUM [Concomitant]
  8. MEFENAMIC ACID [Concomitant]
  9. VERAPAMIL [Concomitant]

REACTIONS (3)
  - HYPOAESTHESIA [None]
  - PERIPHERAL VASCULAR DISORDER [None]
  - SKIN ULCER [None]
